FAERS Safety Report 5559094-2 (Version None)
Quarter: 2007Q4

REPORT INFORMATION
  Report Type: 
  Country: None (occurrence: None)
  Receive Date: 20071214
  Receipt Date: 20071026
  Transmission Date: 20080405
  Serious: No
  Sender: FDA-Public Use
  Company Number: US-ABBOTT-07P-163-0417484-00

PATIENT
  Sex: Female

DRUGS (3)
  1. HUMIRA [Suspect]
     Indication: PSORIATIC ARTHROPATHY
     Route: 058
     Dates: start: 20070815
  2. HUMIRA [Suspect]
     Dates: start: 20070914
  3. MANY MEDICATIONS [Concomitant]
     Indication: DRUG USE FOR UNKNOWN INDICATION

REACTIONS (12)
  - CHILLS [None]
  - INFECTION [None]
  - JOINT SWELLING [None]
  - LOCALISED INFECTION [None]
  - MALAISE [None]
  - MASS [None]
  - PSORIASIS [None]
  - PSORIATIC ARTHROPATHY [None]
  - PYREXIA [None]
  - SWELLING [None]
  - VOMITING [None]
  - WHITE BLOOD CELL COUNT INCREASED [None]
